FAERS Safety Report 5705993-8 (Version None)
Quarter: 2008Q2

REPORT INFORMATION
  Report Type: 
  Country: None (occurrence: None)
  Receive Date: 20080415
  Receipt Date: 20080410
  Transmission Date: 20081010
  Serious: Yes (Hospitalization)
  Sender: FDA-Public Use
  Company Number: US-AVENTIS-200813123GDDC

PATIENT
  Age: 70 Year
  Sex: Male
  Weight: 73.48 kg

DRUGS (8)
  1. DOCETAXEL [Suspect]
     Dosage: DOSE: 66 MG ON DAY 1, 8
     Route: 042
     Dates: start: 20080321, end: 20080327
  2. OXALIPLATIN [Suspect]
     Dosage: DOSE: 95 MG ON DAY 1, 8
     Route: 042
     Dates: start: 20080321, end: 20080327
  3. CAPECITABINE [Suspect]
     Dosage: DOSE: 1250 BID X 10 DAYS
     Route: 048
     Dates: start: 20080321, end: 20080330
  4. MUCINEX [Concomitant]
  5. METFORMIN HCL [Concomitant]
  6. GLIMPERIDE [Concomitant]
  7. VERELAN [Concomitant]
  8. SINGULAIR [Concomitant]

REACTIONS (8)
  - ANAEMIA [None]
  - DEHYDRATION [None]
  - DYSPHAGIA [None]
  - MUCOSAL INFLAMMATION [None]
  - NAUSEA [None]
  - NEUTROPENIA [None]
  - OESOPHAGEAL STENOSIS [None]
  - RASH [None]
